FAERS Safety Report 24613745 (Version 1)
Quarter: 2024Q4

REPORT INFORMATION
  Report Type: Report from Study
  Country: BR (occurrence: BR)
  Receive Date: 20241113
  Receipt Date: 20241113
  Transmission Date: 20250114
  Serious: Yes (Other)
  Sender: BAYER HEALTHCARE PHARMACEUTICALS INC.
  Company Number: BR-BAYER-2024A159005

PATIENT
  Age: 80 Year

DRUGS (4)
  1. NEXAVAR [Suspect]
     Active Substance: SORAFENIB
     Indication: Hepatocellular carcinoma
     Dosage: 400 MG DAILY (TAKES 2 TABLETS A DAY)
     Dates: end: 202408
  2. GLIFAGE [Concomitant]
     Active Substance: METFORMIN HYDROCHLORIDE
     Indication: Diabetes mellitus
     Dosage: TAKES 1 TABLET A DAY FOR QUITE SOME TIME, BEFORE TREATMENT WITH NEXAVAR.
  3. LOSARTAN POTASSIUM [Concomitant]
     Active Substance: LOSARTAN POTASSIUM
     Indication: Hypertension
     Dosage: TAKE 2 TABLETS A DAY FOR QUITE SOME TIME, BEFORE TREATMENT WITH NEXAVAR AND BEFORE GLIFAGE
  4. PANTOPRAZOLE SODIUM [Concomitant]
     Active Substance: PANTOPRAZOLE SODIUM
     Indication: Gastrointestinal disorder
     Dosage: TAKES 1 TABLET IN THE MORNING FOR BREAKFAST

REACTIONS (4)
  - Dizziness [Unknown]
  - Dry skin [Not Recovered/Not Resolved]
  - Asthenia [Not Recovered/Not Resolved]
  - Incorrect dose administered [None]

NARRATIVE: CASE EVENT DATE: 20240801
